FAERS Safety Report 14926389 (Version 1)
Quarter: 2018Q2

REPORT INFORMATION
  Report Type: Spontaneous
  Country: NL (occurrence: NL)
  Receive Date: 20180523
  Receipt Date: 20180523
  Transmission Date: 20180711
  Serious: Yes (Other)
  Sender: FDA-Public Use
  Company Number: NL-TEVA-2018-NL-894285

PATIENT
  Age: 19 Year
  Sex: Female
  Weight: 42 kg

DRUGS (2)
  1. ORALE ANTICONCEPTIE [Concomitant]
  2. LEVETIRACETAM TABLET FO 500MG FILMOMHULDE TABLET, 500 MG (MILLIGRAM) [Suspect]
     Active Substance: LEVETIRACETAM
     Indication: EPILEPSY
     Dosage: 1500 MILLIGRAM DAILY; 1500MG/DAY
     Dates: start: 201606, end: 2018

REACTIONS (1)
  - Renal impairment [Unknown]

NARRATIVE: CASE EVENT DATE: 2017
